FAERS Safety Report 4421164-X (Version None)
Quarter: 2004Q3

REPORT INFORMATION
  Report Type: 
  Country: None (occurrence: None)
  Receive Date: 20040707
  Receipt Date: 20040406
  Transmission Date: 20050211
  Serious: No
  Sender: FDA-Public Use
  Company Number: 338943

PATIENT
  Age: 39 Year
  Sex: Male

DRUGS (6)
  1. FUZEON [Suspect]
     Indication: HIV INFECTION
     Dosage: 90 MG 2 PER DAY SUBCUTANEOUS
     Route: 058
     Dates: start: 20030501
  2. CRIXIVAN [Concomitant]
  3. VIDEX [Concomitant]
  4. VIREAD [Concomitant]
  5. OXYCONTIN [Concomitant]
  6. NORCO (ACETAMINOPHEN/HYDROCODONE BITARTRATE) [Concomitant]

REACTIONS (10)
  - DEPRESSION [None]
  - EYE PRURITUS [None]
  - INJECTION SITE BURNING [None]
  - INJECTION SITE ERYTHEMA [None]
  - INJECTION SITE HAEMORRHAGE [None]
  - INJECTION SITE INDURATION [None]
  - INJECTION SITE PAIN [None]
  - INJECTION SITE PRURITUS [None]
  - MOOD SWINGS [None]
  - OEDEMA PERIPHERAL [None]
